FAERS Safety Report 10173563 (Version 1)
Quarter: 2014Q2

REPORT INFORMATION
  Report Type: Spontaneous
  Country: US (occurrence: US)
  Receive Date: 20140515
  Receipt Date: 20140515
  Transmission Date: 20141212
  Serious: No
  Sender: FDA-Public Use
  Company Number: US-PFIZER INC-2014132856

PATIENT
  Age: 56 Year
  Sex: Female
  Weight: 54.42 kg

DRUGS (4)
  1. LYRICA [Suspect]
     Indication: DIABETIC NEUROPATHY
     Dosage: 100 MG, 1X/DAY
     Route: 048
     Dates: start: 2011
  2. LYRICA [Suspect]
     Dosage: 75 MG, 3X/DAY
     Route: 048
  3. LYRICA [Suspect]
     Dosage: 75 MG, 3X/DAY
     Dates: start: 20140402, end: 20140503
  4. MORPHINE [Concomitant]
     Indication: COMPLEX REGIONAL PAIN SYNDROME
     Dosage: UNK

REACTIONS (1)
  - Hyperhidrosis [Unknown]
